FAERS Safety Report 7364145-9 (Version None)
Quarter: 2011Q1

REPORT INFORMATION
  Report Type: 
  Country: None (occurrence: None)
  Receive Date: 20110321
  Receipt Date: 20110316
  Transmission Date: 20110831
  Serious: Yes (Death)
  Sender: FDA-Public Use
  Company Number: PHHY2011MX21961

PATIENT
  Age: 66 Year
  Sex: Male

DRUGS (1)
  1. STALEVO 100 [Suspect]
     Dosage: 200 MG/150 MG/37.5 MG PER DAY
     Route: 048

REACTIONS (1)
  - CARDIAC ARREST [None]
